FAERS Safety Report 11837225 (Version 2)
Quarter: 2015Q4

REPORT INFORMATION
  Report Type: Spontaneous
  Country: US (occurrence: US)
  Receive Date: 20151215
  Receipt Date: 20151228
  Transmission Date: 20160305
  Serious: No
  Sender: FDA-Public Use
  Company Number: US-PFIZER INC-2015430004

PATIENT
  Age: 45 Year
  Sex: Female

DRUGS (5)
  1. ALPRAZOLAM. [Concomitant]
     Active Substance: ALPRAZOLAM
     Indication: NERVOUSNESS
     Dosage: UNK
     Dates: start: 201412
  2. DICLOFENAC POTASSIUM. [Concomitant]
     Active Substance: DICLOFENAC POTASSIUM
     Indication: ARTHRITIS
     Dosage: 50 MG, ONLY TAKE 2 WHEN NEED IT, NORMALLY ONE TABLET A NIGHT
  3. LYRICA [Suspect]
     Active Substance: PREGABALIN
     Indication: POLYNEUROPATHY
     Dosage: 75 MG, 1X/DAY AT BEDTIME
     Route: 048
     Dates: start: 20151104
  4. HYDROCODONE [Concomitant]
     Active Substance: HYDROCODONE
     Indication: BACK PAIN
     Dosage: 7.5/325MG
  5. CYCLOBENZAPRINE [Concomitant]
     Active Substance: CYCLOBENZAPRINE
     Indication: MUSCLE SPASMS
     Dosage: 10 MG, UNK

REACTIONS (8)
  - Product use issue [Not Recovered/Not Resolved]
  - Dizziness [Recovering/Resolving]
  - Drug effect decreased [Unknown]
  - Impaired driving ability [Unknown]
  - Diarrhoea [Recovered/Resolved]
  - Feeling drunk [Recovering/Resolving]
  - Pain in extremity [Unknown]
  - Headache [Recovered/Resolved]

NARRATIVE: CASE EVENT DATE: 20151104
